FAERS Safety Report 26209040 (Version 1)
Quarter: 2025Q4

REPORT INFORMATION
  Report Type: Spontaneous
  Country: EU (occurrence: EU)
  Receive Date: 20251229
  Receipt Date: 20251229
  Transmission Date: 20260118
  Serious: Yes (Other)
  Sender: TEVA
  Company Number: None

PATIENT
  Age: 72 Year
  Sex: Male

DRUGS (13)
  1. FENTANYL [Suspect]
     Active Substance: FENTANYL
     Indication: Pain in extremity
     Dosage: 12 MICROGRAMS/HOUR TRANSDERMAL PATCHES EFG, 5 PATCHES
     Route: 062
     Dates: start: 20251118, end: 20251125
  2. DEPRAX [Concomitant]
     Indication: Product used for unknown indication
     Dosage: FILM-COATED TABLETS EFG, 60 TABLETS
     Route: 048
     Dates: start: 20250902
  3. PANTOPRAZOLE SODIUM [Concomitant]
     Active Substance: PANTOPRAZOLE SODIUM
     Indication: Product used for unknown indication
     Dosage: EFG GASTRORE-RESISTANT TABLETS, 28 TABLETS (BLISTER)
     Route: 048
     Dates: start: 20160225
  4. RANEXA [Concomitant]
     Active Substance: RANOLAZINE
     Indication: Product used for unknown indication
     Dosage: EXTENDED-RELEASE TABLETS, 60 TABLETS
     Route: 048
     Dates: start: 20150612
  5. CLOPIDOGREL [Concomitant]
     Active Substance: CLOPIDOGREL BISULFATE
     Indication: Product used for unknown indication
     Dosage: CLOPIDOGREL CINFAMED, FILM-COATED TABLETS EFG, 50 TABLETS
     Route: 048
     Dates: start: 20230220
  6. PARACETAMOL PENSA [Concomitant]
     Indication: Product used for unknown indication
     Dosage: PARACETAMOL PENSA PHARMA EFG TABLETS, 40 TABLETS
     Route: 048
     Dates: start: 20251118
  7. METFORMIN HYDROCHLORIDE\SITAGLIPTIN PHOSPHATE [Concomitant]
     Active Substance: METFORMIN HYDROCHLORIDE\SITAGLIPTIN PHOSPHATE
     Indication: Product used for unknown indication
     Dosage: 50 MG/1000 MG, 56 TABLETS
     Route: 048
     Dates: start: 20121016
  8. BISOPROLOL FUMARATE [Concomitant]
     Active Substance: BISOPROLOL FUMARATE
     Indication: Product used for unknown indication
     Dosage: FILM-COATED TABLETS EFG, 28 TABLETS
     Route: 048
     Dates: start: 20120502
  9. ENALAPRIL [Concomitant]
     Active Substance: ENALAPRIL
     Indication: Product used for unknown indication
     Dosage: 56 TABLETS
     Route: 048
     Dates: start: 20220314
  10. NOLOTIL [Concomitant]
     Indication: Product used for unknown indication
     Dosage: 20 CAPSULES
     Route: 048
     Dates: start: 20251118
  11. ATORVASTATIN CALCIUM [Concomitant]
     Active Substance: ATORVASTATIN CALCIUM
     Indication: Product used for unknown indication
     Dosage: FILM-COATED TABLETS EFG, 28 TABLETS
     Route: 048
     Dates: start: 20130204
  12. ASPIRIN [Concomitant]
     Active Substance: ASPIRIN
     Indication: Product used for unknown indication
     Dosage: EFG GASTRORE-RESISTANT TABLETS, 30 TABLETS (PVC-ALUMINUM)
     Route: 048
     Dates: start: 20210714
  13. FERROUS SULFATE [Concomitant]
     Active Substance: FERROUS SULFATE
     Indication: Product used for unknown indication
     Dosage: EXTENDED-RELEASE TABLETS, 30 TABLETS
     Route: 048
     Dates: start: 20240118

REACTIONS (2)
  - Disorientation [Recovered/Resolved]
  - Muscular weakness [Recovered/Resolved]

NARRATIVE: CASE EVENT DATE: 20251121
